FAERS Safety Report 5818506-7 (Version None)
Quarter: 2008Q3

REPORT INFORMATION
  Report Type: 
  Country: None (occurrence: None)
  Receive Date: 20080718
  Receipt Date: 20080709
  Transmission Date: 20090109
  Serious: Yes (Hospitalization)
  Sender: FDA-Public Use
  Company Number: WAES 0709USC00058

PATIENT
  Age: 60 Year
  Sex: Male
  Weight: 68.9467 kg

DRUGS (10)
  1. TAB MK-0518 400 MG [Suspect]
     Indication: HIV INFECTION
     Dosage: 400 MG/ BID/ PO
     Route: 048
     Dates: start: 20070831
  2. TAB DARUNAVIR UNK [Suspect]
     Indication: HIV INFECTION
     Dosage: 600 MG/ BID/ PO
     Route: 048
     Dates: start: 20070831
  3. NORVIR [Suspect]
     Indication: HIV INFECTION
     Dosage: 200 MG/ DAILY
     Dates: start: 20040115
  4. TRUVADA [Suspect]
     Indication: HIV INFECTION
     Dosage: 1 TAB/ DAILY
     Dates: start: 20050623
  5. IMODIUM A-D [Concomitant]
  6. JANUVIA [Concomitant]
  7. LANTUS [Concomitant]
  8. LIPITOR [Concomitant]
  9. PANGESTYME EC [Concomitant]
  10. LISINOPRIL [Concomitant]

REACTIONS (2)
  - CHEST PAIN [None]
  - GASTRITIS [None]
